FAERS Safety Report 19195509 (Version 1)
Quarter: 2021Q2

REPORT INFORMATION
  Report Type: Report from Study
  Country: US (occurrence: US)
  Receive Date: 20210429
  Receipt Date: 20210429
  Transmission Date: 20210717
  Serious: No
  Sender: FDA-Public Use
  Company Number: US-GW PHARMA-202104USGW01941

PATIENT

DRUGS (3)
  1. FELBAMATE. [Concomitant]
     Active Substance: FELBAMATE
     Indication: LENNOX-GASTAUT SYNDROME
     Dosage: UNK
     Route: 065
  2. TOPIRAMATE. [Concomitant]
     Active Substance: TOPIRAMATE
     Indication: LENNOX-GASTAUT SYNDROME
     Dosage: UNK
     Route: 065
  3. EPIDIOLEX [Suspect]
     Active Substance: CANNABIDIOL
     Indication: LENNOX-GASTAUT SYNDROME
     Dosage: 5.4 MG/KG/DAY 400 MILLIGRAM, QD
     Route: 048
     Dates: start: 2020

REACTIONS (1)
  - Condition aggravated [Unknown]
